FAERS Safety Report 9863803 (Version 1)
Quarter: 2014Q1

REPORT INFORMATION
  Report Type: Spontaneous
  Country: JP (occurrence: JP)
  Receive Date: 20140203
  Receipt Date: 20140203
  Transmission Date: 20141002
  Serious: Yes (Other)
  Sender: FDA-Public Use
  Company Number: JP-009507513-1402JPN000465

PATIENT
  Sex: 0

DRUGS (1)
  1. JANUVIA TABLETS 50MG [Suspect]
     Dosage: DAILY DOSE UNKNOWN
     Route: 048

REACTIONS (1)
  - Rhabdomyolysis [Unknown]
